FAERS Safety Report 11410608 (Version 1)
Quarter: 2015Q3

REPORT INFORMATION
  Report Type: Spontaneous
  Country: VE (occurrence: VE)
  Receive Date: 20150824
  Receipt Date: 20150824
  Transmission Date: 20151125
  Serious: Yes (Other)
  Sender: FDA-Public Use
  Company Number: VE-PFIZER INC-2015277068

PATIENT
  Age: 21 Year
  Sex: Male
  Weight: 52 kg

DRUGS (5)
  1. ZYVOX [Suspect]
     Active Substance: LINEZOLID
     Indication: PNEUMONIA
     Dosage: 600 MG, 2X/DAY (EVERY 12 HOURS)
     Route: 042
     Dates: start: 20150810
  2. FLUCONAZOL [Concomitant]
     Active Substance: FLUCONAZOLE
     Indication: PNEUMONIA
     Dosage: 400 MG, UNK
     Route: 042
     Dates: start: 20150804
  3. COLISTINA [Concomitant]
     Active Substance: COLISTIMETHATE SODIUM
     Indication: PNEUMONIA
     Dosage: 90 MG, UNK
     Route: 042
     Dates: start: 20150812
  4. AMPICILLIN SODIUM W/SULBACTAM [Concomitant]
     Indication: PNEUMONIA
     Dosage: 6 G, UNK
     Route: 042
     Dates: start: 20150804, end: 20150812
  5. TYGACIL [Concomitant]
     Active Substance: TIGECYCLINE
     Indication: PNEUMONIA
     Dosage: 50 MG, UNK
     Route: 042
     Dates: start: 20150804

REACTIONS (1)
  - Hypertension [Not Recovered/Not Resolved]

NARRATIVE: CASE EVENT DATE: 20150814
